FAERS Safety Report 18898152 (Version 1)
Quarter: 2021Q1

REPORT INFORMATION
  Report Type: Spontaneous
  Country: US (occurrence: US)
  Receive Date: 20210212
  Receipt Date: 20210212
  Transmission Date: 20210420
  Serious: Yes (Death)
  Sender: FDA-Public Use
  Company Number: None

PATIENT
  Age: 57 Year
  Sex: Female

DRUGS (24)
  1. TADALAFIL 20MG TAB 60/BO (DR. REDDY) [Suspect]
     Active Substance: TADALAFIL
     Indication: PULMONARY HYPERTENSION
     Route: 048
     Dates: start: 20190108, end: 202102
  2. DIGOXIN. [Concomitant]
     Active Substance: DIGOXIN
  3. NORCO [Concomitant]
     Active Substance: ACETAMINOPHEN\HYDROCODONE BITARTRATE
  4. NEB SOLN [Concomitant]
  5. CAPSAICIN TOP CREAM [Concomitant]
  6. BENZONATATE. [Concomitant]
     Active Substance: BENZONATATE
  7. CHLORTHALIDONE. [Concomitant]
     Active Substance: CHLORTHALIDONE
  8. PREDNISONE. [Concomitant]
     Active Substance: PREDNISONE
  9. LIDOCAINE TOP OINT [Concomitant]
  10. ALBUTEROL. [Concomitant]
     Active Substance: ALBUTEROL
  11. ALBUTEROL HFA [Concomitant]
     Active Substance: ALBUTEROL SULFATE
  12. KLOR?CON [Concomitant]
     Active Substance: POTASSIUM CHLORIDE
  13. MAGOX [Concomitant]
  14. FLONASE [Concomitant]
     Active Substance: FLUTICASONE PROPIONATE
  15. COMBIVENT [Concomitant]
     Active Substance: ALBUTEROL SULFATE\IPRATROPIUM BROMIDE
  16. TADALAFIL. [Concomitant]
     Active Substance: TADALAFIL
  17. SPIRONOLACTONE. [Concomitant]
     Active Substance: SPIRONOLACTONE
  18. BUMETANIDE. [Concomitant]
     Active Substance: BUMETANIDE
  19. ANECREAM [Concomitant]
     Active Substance: LIDOCAINE
  20. CELLCEPT [Concomitant]
     Active Substance: MYCOPHENOLATE MOFETIL\MYCOPHENOLATE MOFETIL HYDROCHLORIDE
  21. REMODULIN [Concomitant]
     Active Substance: TREPROSTINIL
  22. IPRATROPIUM INHL SOLN [Concomitant]
  23. TRAZODONE [Concomitant]
     Active Substance: TRAZODONE HYDROCHLORIDE
  24. NARCAN NASL SPRAY [Concomitant]

REACTIONS (1)
  - Death [None]

NARRATIVE: CASE EVENT DATE: 20210206
